FAERS Safety Report 13112370 (Version 1)
Quarter: 2017Q1

REPORT INFORMATION
  Report Type: Spontaneous
  Country: US (occurrence: US)
  Receive Date: 20170113
  Receipt Date: 20170113
  Transmission Date: 20170428
  Serious: Yes (Hospitalization)
  Sender: FDA-Public Use
  Company Number: US-RECKITT BENCKISER HEALTHCARE INT LIMITED-RB-94121-2016

PATIENT
  Age: 79 Year
  Sex: Male

DRUGS (2)
  1. MUCINEX [Suspect]
     Active Substance: GUAIFENESIN
     Indication: PRODUCT USED FOR UNKNOWN INDICATION
     Dosage: 2400 MG, SINGLE
     Route: 065
     Dates: start: 20161031, end: 20161031
  2. MUCINEX [Suspect]
     Active Substance: GUAIFENESIN
     Dosage: 600 MG, ONE AT 04:00PM AND ONE 10 MINUTES PRIOR TO REPORTING
     Route: 065
     Dates: start: 20161101

REACTIONS (2)
  - Dyspnoea [Not Recovered/Not Resolved]
  - Respiratory tract congestion [Not Recovered/Not Resolved]

NARRATIVE: CASE EVENT DATE: 20161101
